FAERS Safety Report 23873227 (Version 2)
Quarter: 2024Q2

REPORT INFORMATION
  Report Type: Spontaneous
  Country: US (occurrence: US)
  Receive Date: 20240520
  Receipt Date: 20240528
  Transmission Date: 20240715
  Serious: No
  Sender: FDA-Public Use
  Company Number: US-GSK-US2024060622

PATIENT
  Sex: Female

DRUGS (1)
  1. NUCALA [Suspect]
     Active Substance: MEPOLIZUMAB
     Indication: Asthma
     Dosage: 100 MG, Q4W
     Route: 058
     Dates: start: 202403, end: 20240514

REACTIONS (8)
  - Headache [Recovered/Resolved]
  - Back pain [Not Recovered/Not Resolved]
  - Nausea [Not Recovered/Not Resolved]
  - Pain in extremity [Not Recovered/Not Resolved]
  - Fall [Not Recovered/Not Resolved]
  - Decreased appetite [Not Recovered/Not Resolved]
  - Condition aggravated [Not Recovered/Not Resolved]
  - Fatigue [Unknown]
